FAERS Safety Report 15466805 (Version 1)
Quarter: 2018Q4

REPORT INFORMATION
  Report Type: Spontaneous
  Country: FR (occurrence: FR)
  Receive Date: 20181005
  Receipt Date: 20181005
  Transmission Date: 20190204
  Serious: Yes (Other)
  Sender: FDA-Public Use
  Company Number: FR-ROCHE-2193769

PATIENT

DRUGS (10)
  1. FOLINIC ACID [Suspect]
     Active Substance: LEUCOVORIN
     Indication: GASTROINTESTINAL CANCER METASTATIC
     Route: 065
  2. BEVACIZUMAB. [Suspect]
     Active Substance: BEVACIZUMAB
     Indication: DIHYDROPYRIMIDINE DEHYDROGENASE DEFICIENCY
  3. FLUOROURACIL. [Suspect]
     Active Substance: FLUOROURACIL
     Indication: GASTROINTESTINAL CANCER METASTATIC
     Route: 065
  4. OXALIPLATIN. [Suspect]
     Active Substance: OXALIPLATIN
     Indication: GASTROINTESTINAL CANCER METASTATIC
     Route: 065
  5. OXALIPLATIN. [Suspect]
     Active Substance: OXALIPLATIN
     Indication: DIHYDROPYRIMIDINE DEHYDROGENASE DEFICIENCY
  6. IRINOTECAN [Suspect]
     Active Substance: IRINOTECAN
     Indication: DIHYDROPYRIMIDINE DEHYDROGENASE DEFICIENCY
  7. IRINOTECAN [Suspect]
     Active Substance: IRINOTECAN
     Indication: GASTROINTESTINAL CANCER METASTATIC
     Route: 065
  8. FLUOROURACIL. [Suspect]
     Active Substance: FLUOROURACIL
     Indication: DIHYDROPYRIMIDINE DEHYDROGENASE DEFICIENCY
  9. FOLINIC ACID [Suspect]
     Active Substance: LEUCOVORIN
     Indication: DIHYDROPYRIMIDINE DEHYDROGENASE DEFICIENCY
  10. BEVACIZUMAB. [Suspect]
     Active Substance: BEVACIZUMAB
     Indication: GASTROINTESTINAL CANCER METASTATIC
     Route: 065

REACTIONS (1)
  - Hyperammonaemic encephalopathy [Unknown]
